FAERS Safety Report 5065844-4 (Version None)
Quarter: 2006Q3

REPORT INFORMATION
  Report Type: 
  Country: None (occurrence: None)
  Receive Date: 20060731
  Receipt Date: 20060627
  Transmission Date: 20061208
  Serious: Yes (Death)
  Sender: FDA-Public Use
  Company Number: PHHO2006SV10452

PATIENT
  Age: 67 Year
  Sex: Female
  Weight: 65 kg

DRUGS (4)
  1. GLEEVEC [Suspect]
     Indication: CHRONIC MYELOID LEUKAEMIA
     Dosage: 400 MG, QD
     Route: 048
     Dates: start: 20050810, end: 20060601
  2. FLUCONAZOLE [Concomitant]
  3. VANCOMYCIN [Concomitant]
  4. CILASTATIN W/IMIPENEM [Concomitant]

REACTIONS (5)
  - FEBRILE NEUTROPENIA [None]
  - GASTROENTERITIS [None]
  - INFECTION [None]
  - SEPSIS [None]
  - SHOCK [None]
